FAERS Safety Report 4274371-3 (Version None)
Quarter: 2004Q1

REPORT INFORMATION
  Report Type: 
  Country: None (occurrence: None)
  Receive Date: 20040120
  Receipt Date: 20031105
  Transmission Date: 20041129
  Serious: Yes (Death, Life-Threatening)
  Sender: FDA-Public Use
  Company Number: WAES 0311USA00579

PATIENT
  Age: 86 Year
  Sex: Male
  Weight: 50 kg

DRUGS (6)
  1. ALBUMIN HUMAN [Concomitant]
     Dates: start: 20031031, end: 20031031
  2. AMINOPHYLLINE [Concomitant]
     Dates: start: 20031031, end: 20031104
  3. PRIMAXIN [Suspect]
     Indication: PNEUMONIA ASPIRATION
     Route: 042
     Dates: start: 20031031, end: 20031104
  4. DOPAMINE HYDROCHLORIDE [Concomitant]
     Dates: start: 20031030, end: 20031105
  5. PLASMA PROTEIN FRACTION [Concomitant]
     Dates: start: 20031029, end: 20031029
  6. VANCOMYCIN [Concomitant]
     Dates: start: 20031031, end: 20031104

REACTIONS (2)
  - CONVULSION [None]
  - RESPIRATORY ARREST [None]
